FAERS Safety Report 9358975 (Version 1)
Quarter: 2013Q2

REPORT INFORMATION
  Report Type: Spontaneous
  Country: US (occurrence: US)
  Receive Date: 20130620
  Receipt Date: 20130620
  Transmission Date: 20140414
  Serious: Yes (Death, Hospitalization)
  Sender: FDA-Public Use
  Company Number: US-CELGENEUS-163-21880-13052240

PATIENT
  Age: 86 Year
  Sex: Female

DRUGS (2)
  1. REVLIMID [Suspect]
     Indication: MYELODYSPLASTIC SYNDROME
     Dosage: 5 MILLIGRAM
     Route: 048
     Dates: start: 20130401, end: 20130510
  2. REVLIMID [Suspect]
     Indication: ACUTE MYELOID LEUKAEMIA

REACTIONS (5)
  - Death [Fatal]
  - Anaemia [Unknown]
  - Febrile neutropenia [Unknown]
  - Pain [Unknown]
  - Drug ineffective [Unknown]
